FAERS Safety Report 20082133 (Version 1)
Quarter: 2021Q4

REPORT INFORMATION
  Report Type: Spontaneous
  Country: US (occurrence: None)
  Receive Date: 20211117
  Receipt Date: 20211117
  Transmission Date: 20220303
  Serious: Yes (Hospitalization)
  Sender: FDA-Public Use
  Company Number: None

PATIENT
  Age: 75 Year
  Sex: Female

DRUGS (4)
  1. HUMIRA [Suspect]
     Active Substance: ADALIMUMAB
     Dosage: OTHER FREQUENCY : 40MG/0.8ML Q2WKS;?
     Route: 058
     Dates: start: 20201027
  2. CEPHALEXIN [Concomitant]
     Active Substance: CEPHALEXIN
  3. METHOTREXATE [Concomitant]
     Active Substance: METHOTREXATE
  4. NEXIUM [Concomitant]

REACTIONS (1)
  - Colonoscopy [None]

NARRATIVE: CASE EVENT DATE: 20211116
